FAERS Safety Report 5923156-8 (Version None)
Quarter: 2008Q4

REPORT INFORMATION
  Report Type: 
  Country: None (occurrence: None)
  Receive Date: 20081020
  Receipt Date: 20081013
  Transmission Date: 20090506
  Serious: Yes (Other)
  Sender: FDA-Public Use
  Company Number: IT-JNJFOC-20081002367

PATIENT
  Age: 23 Year
  Sex: Female

DRUGS (2)
  1. DOXORUBICIN HCL [Suspect]
     Indication: MYCOSIS FUNGOIDES REFRACTORY
     Route: 042
  2. DEXAMETHASONE [Concomitant]
     Route: 042

REACTIONS (4)
  - ABDOMINAL PAIN UPPER [None]
  - CHOKING SENSATION [None]
  - FLUSHING [None]
  - OFF LABEL USE [None]
